FAERS Safety Report 25178711 (Version 1)
Quarter: 2025Q2

REPORT INFORMATION
  Report Type: Spontaneous
  Country: RU (occurrence: RU)
  Receive Date: 20250409
  Receipt Date: 20250409
  Transmission Date: 20250717
  Serious: Yes (Other)
  Sender: SERVIER
  Company Number: None

PATIENT

DRUGS (1)
  1. ONCASPAR [Suspect]
     Active Substance: PEGASPARGASE
     Indication: B-cell type acute leukaemia
     Dosage: 660 IU/M2 WITHIN 4 HOURS ONCE PER 2 WEEKS
     Route: 041
     Dates: start: 20250320, end: 20250320

REACTIONS (1)
  - Diffuse axonal injury [Recovering/Resolving]
